FAERS Safety Report 9101181 (Version 4)
Quarter: 2013Q2

REPORT INFORMATION
  Report Type: Spontaneous
  Country: BR (occurrence: BR)
  Receive Date: 20130218
  Receipt Date: 20130625
  Transmission Date: 20140414
  Serious: Yes (Other)
  Sender: FDA-Public Use
  Company Number: BR-BAYER-2013-017110

PATIENT
  Age: 60 Year
  Sex: Male

DRUGS (3)
  1. REGORAFENIB [Suspect]
     Indication: COLORECTAL CANCER METASTATIC
     Dosage: 4 DF, QD
     Route: 048
     Dates: start: 201211, end: 2013
  2. AVASTIN [Concomitant]
     Indication: COLON CANCER METASTATIC
     Dosage: UNK
     Dates: start: 20130205
  3. FOLFOX-4 [Concomitant]
     Indication: COLON CANCER METASTATIC
     Dosage: UNK
     Dates: start: 20130205

REACTIONS (6)
  - Colon cancer [Recovering/Resolving]
  - Drug-induced liver injury [None]
  - Drug-induced liver injury [None]
  - Drug ineffective [None]
  - Hypoaesthesia [None]
  - Vomiting [None]
